FAERS Safety Report 7778184-7 (Version None)
Quarter: 2011Q3

REPORT INFORMATION
  Report Type: 
  Country: None (occurrence: None)
  Receive Date: 20110922
  Receipt Date: 20110914
  Transmission Date: 20111222
  Serious: Yes (Hospitalization, Disabling, Other)
  Sender: FDA-Public Use
  Company Number: DEP_00516_2011

PATIENT
  Age: 77 Year
  Sex: Male

DRUGS (5)
  1. GABAPENTIN (GABAPENTIN) [Suspect]
     Indication: LIMB DISCOMFORT
     Dosage: DF
  2. ENALAPRIL MALEATE [Concomitant]
  3. ACETYLSALICYLIC ACID SRT [Concomitant]
  4. OMEPRAZOLE [Concomitant]
  5. CLOPIDOGREL [Concomitant]

REACTIONS (8)
  - HYPERREFLEXIA [None]
  - PARKINSONISM [None]
  - MYOCLONUS [None]
  - ACTIVITIES OF DAILY LIVING IMPAIRED [None]
  - RESTLESSNESS [None]
  - BODY TEMPERATURE DECREASED [None]
  - BLOOD CREATININE INCREASED [None]
  - CEREBRAL SMALL VESSEL ISCHAEMIC DISEASE [None]
